FAERS Safety Report 6219074-0 (Version None)
Quarter: 2009Q2

REPORT INFORMATION
  Report Type: 
  Country: None (occurrence: None)
  Receive Date: 20090609
  Receipt Date: 20070507
  Transmission Date: 20091009
  Serious: Yes (Hospitalization)
  Sender: FDA-Public Use
  Company Number: US-ASTRAZENECA-2006UW07838

PATIENT
  Age: 26 Year
  Sex: Female
  Weight: 108.1 kg

DRUGS (23)
  1. SEROQUEL [Suspect]
     Indication: BIPOLAR DISORDER
     Route: 048
     Dates: start: 20000501, end: 20060301
  2. SEROQUEL [Suspect]
     Indication: DEPRESSION
     Route: 048
     Dates: start: 20000501, end: 20060301
  3. SEROQUEL [Suspect]
     Indication: SLEEP DISORDER
     Route: 048
     Dates: start: 20000501, end: 20060301
  4. SEROQUEL [Suspect]
     Indication: ANXIETY
     Route: 048
     Dates: start: 20000501, end: 20060301
  5. SEROQUEL [Suspect]
     Dosage: 25 MG TO 800 MG
     Route: 048
     Dates: start: 20011101
  6. SEROQUEL [Suspect]
     Dosage: 25 MG TO 800 MG
     Route: 048
     Dates: start: 20011101
  7. SEROQUEL [Suspect]
     Dosage: 25 MG TO 800 MG
     Route: 048
     Dates: start: 20011101
  8. SEROQUEL [Suspect]
     Dosage: 25 MG TO 800 MG
     Route: 048
     Dates: start: 20011101
  9. RISPERDAL [Concomitant]
     Dates: start: 20060101
  10. RISPERDAL [Concomitant]
     Dosage: 1-4 GM
     Route: 048
     Dates: start: 19990101
  11. CELEXA [Concomitant]
     Dosage: 20-40 MG
     Route: 048
     Dates: start: 20010920
  12. METFORMIN HYDROCHLORIDE [Concomitant]
     Route: 048
     Dates: start: 20020623
  13. WELLBUTRIN [Concomitant]
     Indication: DEPRESSION
     Route: 048
     Dates: start: 20030806
  14. SINGULAIR [Concomitant]
     Route: 048
     Dates: start: 20020714
  15. ZYRTEC [Concomitant]
     Indication: MULTIPLE ALLERGIES
     Route: 048
     Dates: start: 20020623
  16. LEVOXYL [Concomitant]
     Dosage: 150 MCG-0.12 MG
     Route: 048
     Dates: start: 20020602
  17. PROTONIX [Concomitant]
     Route: 048
     Dates: start: 20021104
  18. TRILEPTAL [Concomitant]
     Dosage: 150-600 MG
     Route: 048
     Dates: start: 20060728
  19. DDAVP [Concomitant]
     Indication: DIABETES INSIPIDUS
     Dosage: 0.1-0.6 MG
     Route: 048
     Dates: start: 20010920
  20. KLONOPIN [Concomitant]
     Indication: PANIC DISORDER
     Dosage: 150-600 MG
     Route: 048
     Dates: start: 19991110
  21. KLONOPIN [Concomitant]
     Indication: ANXIETY
     Dosage: 150-600 MG
     Route: 048
     Dates: start: 19991110
  22. KLONOPIN [Concomitant]
     Indication: INSOMNIA
     Dosage: 150-600 MG
     Route: 048
     Dates: start: 19991110
  23. NEURONTIN [Concomitant]
     Indication: ANXIETY
     Dosage: 300-600 MG
     Route: 048
     Dates: start: 20010529

REACTIONS (4)
  - LIVER FUNCTION TEST ABNORMAL [None]
  - LIVER INJURY [None]
  - PANCREATITIS [None]
  - PANCREATITIS ACUTE [None]
